FAERS Safety Report 18795132 (Version 3)
Quarter: 2021Q2

REPORT INFORMATION
  Report Type: Spontaneous
  Country: US (occurrence: US)
  Receive Date: 20210127
  Receipt Date: 20210514
  Transmission Date: 20210717
  Serious: No
  Sender: FDA-Public Use
  Company Number: US-PFIZER INC-2021069464

PATIENT
  Age: 69 Year
  Sex: Female

DRUGS (1)
  1. EUCRISA [Suspect]
     Active Substance: CRISABOROLE
     Indication: LIP DISORDER
     Dosage: UNK, 2X/DAY(APPLY TO FACE TWICE DAILY)
     Route: 061

REACTIONS (3)
  - Arthritis [Unknown]
  - Off label use [Unknown]
  - Drug ineffective for unapproved indication [Unknown]
